FAERS Safety Report 9129498 (Version 1)
Quarter: 2013Q1

REPORT INFORMATION
  Report Type: Spontaneous
  Country: JP (occurrence: JP)
  Receive Date: 20130228
  Receipt Date: 20130228
  Transmission Date: 20140127
  Serious: Yes (Other)
  Sender: FDA-Public Use
  Company Number: JP-GLAXOSMITHKLINE-B0870841A

PATIENT
  Age: 56 Year
  Sex: Male

DRUGS (1)
  1. REVOLADE [Suspect]
     Indication: IDIOPATHIC THROMBOCYTOPENIC PURPURA
     Dosage: 4IUAX PER DAY
     Route: 048
     Dates: start: 20110608

REACTIONS (1)
  - Malaise [Not Recovered/Not Resolved]
